FAERS Safety Report 7973034-8 (Version None)
Quarter: 2011Q4

REPORT INFORMATION
  Report Type: 
  Country: None (occurrence: None)
  Receive Date: 20111213
  Receipt Date: 20111205
  Transmission Date: 20120403
  Serious: Yes (Hospitalization)
  Sender: FDA-Public Use
  Company Number: US-US-EMD SERONO, INC.-7001930

PATIENT
  Sex: Female
  Weight: 56 kg

DRUGS (1)
  1. REBIF [Suspect]
     Indication: MULTIPLE SCLEROSIS
     Route: 058
     Dates: start: 20091021

REACTIONS (5)
  - INJECTION SITE PAIN [None]
  - HYPERTENSION [None]
  - INJECTION SITE HAEMATOMA [None]
  - GALLBLADDER NON-FUNCTIONING [None]
  - INJECTION SITE ERYTHEMA [None]
